FAERS Safety Report 5108785-6 (Version None)
Quarter: 2006Q3

REPORT INFORMATION
  Report Type: 
  Country: None (occurrence: None)
  Receive Date: 20060920
  Receipt Date: 20060906
  Transmission Date: 20061208
  Serious: Yes (Hospitalization, Other)
  Sender: FDA-Public Use
  Company Number: US-BRISTOL-MYERS SQUIBB COMPANY-13499546

PATIENT
  Age: 5 Week
  Sex: Female
  Weight: 1 kg

DRUGS (1)
  1. CAFCIT [Suspect]
     Indication: APNOEA
     Route: 042
     Dates: start: 20060902

REACTIONS (2)
  - MEDICATION ERROR [None]
  - NECROTISING COLITIS [None]
